FAERS Safety Report 22256743 (Version 2)
Quarter: 2023Q2

REPORT INFORMATION
  Report Type: Report from Study
  Country: US (occurrence: US)
  Receive Date: 20230426
  Receipt Date: 20230522
  Transmission Date: 20230721
  Serious: Yes (Other)
  Sender: FDA-Public Use
  Company Number: US-BAUSCH-BL-2020-037260

PATIENT
  Age: 68 Year
  Sex: Male

DRUGS (23)
  1. XIFAXAN [Suspect]
     Active Substance: RIFAXIMIN
     Indication: Hepatic encephalopathy
     Route: 048
     Dates: start: 20160714
  2. XIFAXAN [Suspect]
     Active Substance: RIFAXIMIN
     Route: 048
     Dates: start: 20210421
  3. ASPIRIN [Suspect]
     Active Substance: ASPIRIN
     Indication: Product used for unknown indication
     Route: 065
  4. OZEMPIC [Suspect]
     Active Substance: SEMAGLUTIDE
     Indication: Product used for unknown indication
     Dosage: 0.5 (UNITS UNSPECIFIED)
     Route: 065
  5. LACTULOSE [Suspect]
     Active Substance: LACTULOSE
     Indication: Hepatic encephalopathy
     Dosage: 10G/15ML SOLUTION, DISPENSE A MONTH SUPPLY WITH REFILLS 1 UNIT
     Route: 048
     Dates: start: 20170217
  6. LACTULOSE [Suspect]
     Active Substance: LACTULOSE
     Dosage: 10G/15ML SOLUTION; 2 TABLESPOON TWICE DAILY ON MONDAY-WEDNESDAY-FRIDAY, AS NEEDED
     Route: 048
     Dates: start: 20201130
  7. PROTONIX [Suspect]
     Active Substance: PANTOPRAZOLE SODIUM
     Indication: Product used for unknown indication
     Dosage: 40 MG TWICE DAILY BEFORE LUNCH AND DINNER
     Route: 048
     Dates: start: 20200617
  8. PROTONIX [Suspect]
     Active Substance: PANTOPRAZOLE SODIUM
     Dosage: 40 MG TWICE DAILY BEFORE LUNCH AND DINNER
     Route: 048
     Dates: start: 20201130
  9. PROTONIX [Suspect]
     Active Substance: PANTOPRAZOLE SODIUM
     Dosage: 1 MONTH 60 UNITS
     Route: 048
     Dates: start: 20220719
  10. BETHANECHOL CHLORIDE [Suspect]
     Active Substance: BETHANECHOL CHLORIDE
     Indication: Product used for unknown indication
     Dosage: Q HS 1 MONTH 30 UNITS
     Route: 048
     Dates: start: 20220420
  11. LANTUS [Suspect]
     Active Substance: INSULIN GLARGINE
     Indication: Product used for unknown indication
     Dosage: 100 UNITS/ML; 1 SUBCUTANEOUS DAILY 70-30
     Route: 058
     Dates: start: 20180928
  12. FAMOTIDINE [Suspect]
     Active Substance: FAMOTIDINE
     Indication: Product used for unknown indication
     Dosage: QHS, 1 MONTH 30 UNITS
     Route: 048
     Dates: start: 20220420
  13. PERCOCET [Concomitant]
     Active Substance: ACETAMINOPHEN\OXYCODONE HYDROCHLORIDE
     Indication: Product used for unknown indication
     Route: 048
     Dates: start: 20151027
  14. PLAVIX [Concomitant]
     Active Substance: CLOPIDOGREL BISULFATE
     Indication: Product used for unknown indication
     Dosage: 1 TABLET DAILY
     Route: 048
     Dates: start: 20150311
  15. ADVAIR HFA [Concomitant]
     Active Substance: FLUTICASONE PROPIONATE\SALMETEROL XINAFOATE
     Indication: Product used for unknown indication
     Dosage: ADVAIR DISKUS 250/50 MCG; ACTUATION POWDER FOR INHALATION, 1 PUFF TWICE DAILY
     Route: 055
     Dates: start: 20150311
  16. ALENDRONATE SODIUM [Concomitant]
     Active Substance: ALENDRONATE SODIUM
     Indication: Product used for unknown indication
     Dosage: EVERY 1 WEEK
     Route: 048
     Dates: start: 20150311
  17. ATORVASTATIN CALCIUM [Concomitant]
     Active Substance: ATORVASTATIN CALCIUM
     Indication: Product used for unknown indication
     Dosage: 1 TABLET DAILY
     Route: 048
     Dates: start: 20150311
  18. BYSTOLIC [Concomitant]
     Active Substance: NEBIVOLOL HYDROCHLORIDE
     Indication: Product used for unknown indication
     Dosage: 1 TABLET DAILY
     Route: 048
     Dates: start: 20150520
  19. COMBIVENT [Concomitant]
     Active Substance: ALBUTEROL SULFATE\IPRATROPIUM BROMIDE
     Indication: Product used for unknown indication
     Dosage: 103/18 MCG; ACTUATION INHALATION AEROSOL, 4 PUFFS TWICE DAILY
     Route: 055
     Dates: start: 20150311
  20. LASIX [Concomitant]
     Active Substance: FUROSEMIDE
     Indication: Product used for unknown indication
     Dosage: 1 TABLET DAILY, AS NEEDED
     Route: 048
     Dates: start: 20150311
  21. PREDNISONE [Concomitant]
     Active Substance: PREDNISONE
     Indication: Product used for unknown indication
     Dosage: 1 TABLET DAILY
     Route: 048
     Dates: start: 20150311
  22. OXYGEN [Concomitant]
     Active Substance: OXYGEN
     Indication: Chronic obstructive pulmonary disease
     Dosage: AT BEDTIME
  23. OXYGEN [Concomitant]
     Active Substance: OXYGEN
     Indication: Pneumoconiosis

REACTIONS (10)
  - Non-alcoholic steatohepatitis [Unknown]
  - Hepatic fibrosis [Unknown]
  - Weight increased [Unknown]
  - Central obesity [Unknown]
  - Peripheral swelling [Not Recovered/Not Resolved]
  - Abdominal distension [Unknown]
  - Chest pain [Unknown]
  - Flatulence [Unknown]
  - Abdominal pain [Unknown]
  - Inability to afford medication [Unknown]

NARRATIVE: CASE EVENT DATE: 20170101
